FAERS Safety Report 12831683 (Version 1)
Quarter: 2016Q4

REPORT INFORMATION
  Report Type: Report from Study
  Country: US (occurrence: US)
  Receive Date: 20161010
  Receipt Date: 20161010
  Transmission Date: 20170207
  Serious: Yes (Other)
  Sender: FDA-Public Use
  Company Number: US-AMGEN-USASL2016135926

PATIENT
  Sex: Male

DRUGS (1)
  1. REPATHA [Suspect]
     Active Substance: EVOLOCUMAB
     Indication: BLOOD CHOLESTEROL ABNORMAL
     Dosage: UNK UNK, Q2WK
     Route: 065
     Dates: start: 201607, end: 201608

REACTIONS (12)
  - Memory impairment [Unknown]
  - Laboratory test abnormal [Unknown]
  - Headache [Unknown]
  - Pain [Unknown]
  - Weight decreased [Unknown]
  - Vision blurred [Unknown]
  - Mental impairment [Unknown]
  - Hypoaesthesia [Recovering/Resolving]
  - Muscular weakness [Unknown]
  - Diarrhoea [Unknown]
  - Blood glucose abnormal [Unknown]
  - Constipation [Unknown]
